FAERS Safety Report 20719016 (Version 1)
Quarter: 2022Q2

REPORT INFORMATION
  Report Type: Other
  Country: GB (occurrence: GB)
  Receive Date: 20220418
  Receipt Date: 20220418
  Transmission Date: 20220720
  Serious: Yes (Disabling)
  Sender: FDA-Public Use
  Company Number: GB-MACLEODS PHARMACEUTICALS US LTD-MAC2022035212

PATIENT

DRUGS (2)
  1. TAMSULOSIN HYDROCHLORIDE [Suspect]
     Active Substance: TAMSULOSIN HYDROCHLORIDE
     Indication: Prostatitis
     Dosage: 400 MICROGRAM
     Route: 065
     Dates: end: 20220323
  2. INDAPAMIDE [Concomitant]
     Active Substance: INDAPAMIDE
     Indication: Hypertension
     Dosage: UNK
     Route: 065

REACTIONS (3)
  - Depressed mood [Recovered/Resolved]
  - Lethargy [Recovered/Resolved]
  - Malaise [Recovered/Resolved]
